FAERS Safety Report 16528506 (Version 2)
Quarter: 2019Q3

REPORT INFORMATION
  Report Type: Report from Study
  Country: CA (occurrence: CA)
  Receive Date: 20190703
  Receipt Date: 20190705
  Transmission Date: 20191004
  Serious: Yes (Hospitalization, Other)
  Sender: FDA-Public Use
  Company Number: CA-ASTRAZENECA-2019SE94178

PATIENT
  Sex: Male

DRUGS (1)
  1. IMFINZI [Suspect]
     Active Substance: DURVALUMAB
     Indication: LUNG NEOPLASM MALIGNANT
     Dosage: 15ML
     Route: 042

REACTIONS (6)
  - Chills [Unknown]
  - Feeling cold [Unknown]
  - Tremor [Unknown]
  - Pyrexia [Not Recovered/Not Resolved]
  - Skin discolouration [Unknown]
  - Blood pressure increased [Unknown]
